FAERS Safety Report 15863199 (Version 2)
Quarter: 2019Q1

REPORT INFORMATION
  Report Type: Spontaneous
  Country: US (occurrence: US)
  Receive Date: 20190124
  Receipt Date: 20190212
  Transmission Date: 20190417
  Serious: Yes (Hospitalization)
  Sender: FDA-Public Use
  Company Number: US-MISSION PHARMACAL COMPANY-2061704

PATIENT
  Age: 49 Year
  Sex: Female

DRUGS (2)
  1. POTASSIUM CITRATE. [Suspect]
     Active Substance: POTASSIUM CITRATE
     Indication: CYSTINURIA
  2. THIOLA [Concomitant]
     Active Substance: TIOPRONIN
     Route: 048
     Dates: start: 20180318

REACTIONS (8)
  - Hypertension [Unknown]
  - Fluid retention [Unknown]
  - Headache [Unknown]
  - Swelling [Unknown]
  - Cardiac failure congestive [Unknown]
  - Influenza [Unknown]
  - Asthma [Unknown]
  - Platelet count decreased [Unknown]
